FAERS Safety Report 24450315 (Version 1)
Quarter: 2024Q4

REPORT INFORMATION
  Report Type: Spontaneous
  Country: US (occurrence: US)
  Receive Date: 20241017
  Receipt Date: 20241017
  Transmission Date: 20250114
  Serious: No
  Sender: CHURCH & DWIGHT
  Company Number: US-ChurchDwight-2024-CDW-01718

PATIENT
  Age: 54 Year
  Sex: Male

DRUGS (2)
  1. ZINC ACETATE\ZINC GLUCONATE [Suspect]
     Active Substance: ZINC ACETATE\ZINC GLUCONATE
     Indication: Nasopharyngitis
     Dosage: 1 PILL DAY 1, 3 PILLS SPREAD OUT ON DAY 2
     Route: 048
     Dates: start: 20241003, end: 20241004
  2. CIALIS [Concomitant]
     Active Substance: TADALAFIL
     Indication: Prostate examination abnormal
     Dosage: LOW DOSE
     Route: 065

REACTIONS (3)
  - Ageusia [Not Recovered/Not Resolved]
  - Oropharyngeal discomfort [Recovered/Resolved]
  - Headache [Recovered/Resolved]

NARRATIVE: CASE EVENT DATE: 20241004
